FAERS Safety Report 7467902-3 (Version None)
Quarter: 2011Q2

REPORT INFORMATION
  Report Type: 
  Country: None (occurrence: None)
  Receive Date: 20110509
  Receipt Date: 20110222
  Transmission Date: 20111010
  Serious: No
  Sender: FDA-Public Use
  Company Number: US-ALEXION-A201100227

PATIENT
  Sex: Female

DRUGS (5)
  1. COUMADIN [Concomitant]
     Dosage: UNK
     Route: 048
  2. SOLIRIS [Suspect]
     Indication: PAROXYSMAL NOCTURNAL HAEMOGLOBINURIA
     Dosage: 900 MG, Q2W
     Route: 042
  3. FOLIC ACID [Concomitant]
     Dosage: UNK
     Route: 048
  4. SYNTHROID [Concomitant]
     Dosage: UNK
     Route: 048
  5. CELEXA [Concomitant]
     Dosage: UNK
     Route: 048

REACTIONS (8)
  - PLATELET COUNT DECREASED [None]
  - WHITE BLOOD CELL COUNT DECREASED [None]
  - VIRAL INFECTION [None]
  - NEUTROPHIL COUNT DECREASED [None]
  - BLOOD COUNT ABNORMAL [None]
  - FATIGUE [None]
  - BLOOD LACTATE DEHYDROGENASE INCREASED [None]
  - HAEMOGLOBIN DECREASED [None]
